FAERS Safety Report 9227386 (Version 1)
Quarter: 2013Q1

REPORT INFORMATION
  Report Type: Spontaneous
  Country: US (occurrence: None)
  Receive Date: 20121012
  Receipt Date: 20121012
  Transmission Date: 20140127
  Serious: Yes (Other)
  Sender: FDA-Public Use
  Company Number: 1000027292

PATIENT
  Sex: Female
  Weight: 49.9 kg

DRUGS (5)
  1. LEXAPRO (ESCITALOPRAM OXALATE) [Suspect]
     Dosage: 5 GM, 1 IN 1 D?
  2. ARMOUR (THYROID (THYROID) [Concomitant]
  3. ATIVAN (LORAZEPAM) (LORAZEPAM) [Concomitant]
  4. XANAX (ALPRAZOLAM) (ALPRAZOLAM) [Concomitant]
  5. CATAPRES (CLONIDINE) (CLONIDINE) [Concomitant]

REACTIONS (6)
  - Blood pressure increased [None]
  - Cold sweat [None]
  - Headache [None]
  - Burning sensation [None]
  - Feeling abnormal [None]
  - Nausea [None]
